FAERS Safety Report 25881130 (Version 1)
Quarter: 2025Q4

REPORT INFORMATION
  Report Type: Spontaneous
  Country: EU (occurrence: EU)
  Receive Date: 20251004
  Receipt Date: 20251004
  Transmission Date: 20260117
  Serious: Yes (Hospitalization, Other)
  Sender: ABBVIE
  Company Number: EU-ABBVIE-6483594

PATIENT
  Age: 24 Year
  Sex: Male

DRUGS (4)
  1. UPADACITINIB [Suspect]
     Active Substance: UPADACITINIB
     Indication: Crohn^s disease
     Dosage: 30 MILLIGRAM
     Route: 048
     Dates: start: 20231010, end: 20240529
  2. METHYLPREDNISOLONE [Concomitant]
     Active Substance: METHYLPREDNISOLONE
     Indication: Crohn^s disease
     Dosage: 48 MILLIGRAM
     Dates: start: 202312
  3. METHOTREXATE [Concomitant]
     Active Substance: METHOTREXATE
     Indication: Crohn^s disease
     Dates: start: 202312
  4. METHOTREXATE [Concomitant]
     Active Substance: METHOTREXATE
     Indication: Crohn^s disease
     Dates: start: 20230206, end: 20231010

REACTIONS (10)
  - Bauhin^s valve syndrome [Unknown]
  - Drug ineffective [Unknown]
  - Abdominal wall abscess [Recovered/Resolved]
  - Intestinal anastomosis complication [Unknown]
  - Crohn^s disease [Recovered/Resolved]
  - Faecal calprotectin increased [Unknown]
  - Femur fracture [Unknown]
  - Enterocutaneous fistula [Unknown]
  - Colitis [Unknown]
  - Crohn^s disease [Unknown]

NARRATIVE: CASE EVENT DATE: 20231201
